FAERS Safety Report 25860276 (Version 1)
Quarter: 2025Q3

REPORT INFORMATION
  Report Type: Spontaneous
  Country: US (occurrence: None)
  Receive Date: 20250928
  Receipt Date: 20250928
  Transmission Date: 20251020
  Serious: Yes (Disabling)
  Sender: FDA-CTU
  Company Number: None

PATIENT
  Age: 55 Year
  Sex: Female
  Weight: 58.5 kg

DRUGS (3)
  1. GABAPENTIN [Suspect]
     Active Substance: GABAPENTIN
     Indication: Pain
     Dosage: 6 TABLET(S) EVERY 6 HOURS ORAL ?
     Route: 048
  2. GABAPENTIN [Suspect]
     Active Substance: GABAPENTIN
     Indication: Seizure
  3. GABAPENTIN [Suspect]
     Active Substance: GABAPENTIN
     Indication: Affective disorder

REACTIONS (2)
  - Dementia [None]
  - Incorrect dose administered [None]

NARRATIVE: CASE EVENT DATE: 20240901
